FAERS Safety Report 12845921 (Version 3)
Quarter: 2017Q2

REPORT INFORMATION
  Report Type: Spontaneous
  Country: US (occurrence: US)
  Receive Date: 20161014
  Receipt Date: 20170504
  Transmission Date: 20170830
  Serious: Yes (Hospitalization)
  Sender: FDA-Public Use
  Company Number: US-ROCHE-1809580

PATIENT
  Sex: Male

DRUGS (1)
  1. ESBRIET [Suspect]
     Active Substance: PIRFENIDONE
     Indication: IDIOPATHIC PULMONARY FIBROSIS
     Route: 048
     Dates: start: 20160707, end: 201612

REACTIONS (4)
  - Gastrooesophageal reflux disease [Unknown]
  - Respiratory tract infection [Unknown]
  - Immunodeficiency [Unknown]
  - Diarrhoea [Unknown]
